FAERS Safety Report 7866555-X (Version None)
Quarter: 2011Q4

REPORT INFORMATION
  Report Type: 
  Country: None (occurrence: None)
  Receive Date: 20111028
  Receipt Date: 20110706
  Transmission Date: 20120403
  Serious: No
  Sender: FDA-Public Use
  Company Number: US-GLAXOSMITHKLINE-A0935142A

PATIENT
  Age: 47 Year
  Sex: Female

DRUGS (7)
  1. SINGULAIR [Concomitant]
  2. BENAZEPRIL HYDROCHLORIDE AND HYDROCHLOROTHIAZIDE [Concomitant]
  3. BIOIDENTICAL ESTROGEN [Concomitant]
  4. ZYRTEC [Concomitant]
  5. VENTOLIN HFA [Concomitant]
  6. ADVAIR DISKUS 100/50 [Suspect]
     Indication: ASTHMA
     Dosage: 2PUFF TWICE PER DAY
     Route: 055
     Dates: start: 20110504
  7. ALBUTEROL [Concomitant]

REACTIONS (3)
  - SENSATION OF FOREIGN BODY [None]
  - DYSPNOEA [None]
  - DYSPHONIA [None]
